FAERS Safety Report 4659274-4 (Version None)
Quarter: 2005Q2

REPORT INFORMATION
  Report Type: 
  Country: None (occurrence: None)
  Receive Date: 20050510
  Receipt Date: 20050504
  Transmission Date: 20051028
  Serious: Yes (Hospitalization)
  Sender: FDA-Public Use
  Company Number: A001-319-613

PATIENT
  Age: 77 Year
  Sex: Male
  Weight: 76 kg

DRUGS (10)
  1. DONEPEZIL HCL [Suspect]
     Indication: VASCULAR DEMENTIA
     Dosage: 5 MG, 1 IN 1 D, ORAL
     Route: 048
     Dates: start: 20031222, end: 20040325
  2. DONEPEZIL HCL [Suspect]
     Indication: VASCULAR DEMENTIA
     Dosage: 5 MG, 1 IN 1 D, ORAL
     Route: 048
     Dates: start: 20040331
  3. PERINDOPRIL (PERINDOPRIL) [Concomitant]
  4. ISOSORBIDE MONONITRATE [Concomitant]
  5. FUROSEMIDE [Concomitant]
  6. WARFARIN SODIUM [Concomitant]
  7. DIGOXIN [Concomitant]
  8. VENLAFAXINE HCL [Concomitant]
  9. METOPROLOL TARTRATE [Concomitant]
  10. PRAZOSIN GITS [Concomitant]

REACTIONS (7)
  - ASTHENIA [None]
  - ATRIAL FIBRILLATION [None]
  - BALANCE DISORDER [None]
  - BRADYARRHYTHMIA [None]
  - CARDIAC OUTPUT DECREASED [None]
  - SICK SINUS SYNDROME [None]
  - SINUS ARREST [None]
